FAERS Safety Report 6445931-6 (Version None)
Quarter: 2009Q4

REPORT INFORMATION
  Report Type: 
  Country: None (occurrence: None)
  Receive Date: 20091119
  Receipt Date: 20090127
  Transmission Date: 20100525
  Serious: No
  Sender: FDA-Public Use
  Company Number: A0765462A

PATIENT
  Age: 67 Year
  Sex: Male

DRUGS (18)
  1. BUPROPION HYDROCHLORIDE [Suspect]
     Indication: DEPRESSION
     Dosage: 150MG TWICE PER DAY
     Route: 048
     Dates: start: 20081001
  2. ADVAIR DISKUS 100/50 [Concomitant]
  3. DIOVAN [Concomitant]
  4. NEURONTIN [Concomitant]
  5. ISOSORBIDE [Concomitant]
  6. METOPROLOL [Concomitant]
  7. NITROGLYCERIN [Concomitant]
  8. PLAVIX [Concomitant]
  9. PRO-AIR [Concomitant]
  10. RANEXA [Concomitant]
  11. SPIRONOLACTONE [Concomitant]
  12. XANAX [Concomitant]
  13. LUNESTA [Concomitant]
  14. VICODIN [Concomitant]
  15. MORPHINE SULFATE [Concomitant]
  16. TRAMADOL HCL [Concomitant]
  17. OXYGEN [Concomitant]
  18. C-PAP MACHINE [Concomitant]

REACTIONS (3)
  - CONFUSIONAL STATE [None]
  - CRYING [None]
  - DRUG INEFFECTIVE [None]
